FAERS Safety Report 5970961-8 (Version None)
Quarter: 2008Q4

REPORT INFORMATION
  Report Type: 
  Country: None (occurrence: None)
  Receive Date: 20081128
  Receipt Date: 20081119
  Transmission Date: 20090506
  Serious: Yes (Other)
  Sender: FDA-Public Use
  Company Number: PHEH2008US10406

PATIENT
  Age: 52 Year
  Sex: Female
  Weight: 68.934 kg

DRUGS (8)
  1. FEMARA [Suspect]
     Indication: BREAST CANCER
     Dosage: 2.5 MG, QD
     Route: 048
     Dates: start: 20080814
  2. ZETIA [Concomitant]
  3. TRICOR [Concomitant]
  4. FLEXERIL [Concomitant]
  5. DARVOCET-N 100 [Concomitant]
  6. ZANTAC [Concomitant]
  7. PRILOSEC [Concomitant]
  8. CALCIUM [Concomitant]

REACTIONS (3)
  - COUGH [None]
  - DYSPNOEA [None]
  - PNEUMONITIS [None]
